FAERS Safety Report 12059269 (Version 1)
Quarter: 2016Q1

REPORT INFORMATION
  Report Type: Spontaneous
  Country: US (occurrence: None)
  Receive Date: 20160209
  Receipt Date: 20160209
  Transmission Date: 20160526
  Serious: Yes (Disabling)
  Sender: FDA-Public Use
  Company Number: None

PATIENT
  Age: 41 Year
  Sex: Female
  Weight: 80.29 kg

DRUGS (13)
  1. LEVOTHYROXINE. [Concomitant]
     Active Substance: LEVOTHYROXINE
  2. ADVIL MIGRAINE [Concomitant]
     Active Substance: IBUPROFEN
  3. MAGNESIUM [Concomitant]
     Active Substance: MAGNESIUM
  4. FISH OIL [Concomitant]
     Active Substance: FISH OIL
  5. VITAMIN D [Concomitant]
     Active Substance: CHOLECALCIFEROL
  6. MULTI VITAMIN [Concomitant]
     Active Substance: VITAMINS
  7. LORAZAPAM [Concomitant]
     Active Substance: LORAZEPAM
  8. PROAIR HFA [Concomitant]
     Active Substance: ALBUTEROL SULFATE
  9. CALCIUM [Concomitant]
     Active Substance: CALCIUM
  10. SYNTHROID [Suspect]
     Active Substance: LEVOTHYROXINE SODIUM
     Indication: HYPOTHYROIDISM
     Dosage: 1
     Route: 048
     Dates: start: 20160122, end: 20160204
  11. FLUTICASONE PROPIONATE NASAL SPRAY [Concomitant]
     Active Substance: FLUTICASONE PROPIONATE
  12. IRON [Concomitant]
     Active Substance: IRON
  13. D-RIBOSE [Concomitant]
     Active Substance: DIETARY SUPPLEMENT

REACTIONS (7)
  - Alopecia [None]
  - Feeling abnormal [None]
  - Fatigue [None]
  - Crying [None]
  - Headache [None]
  - Diarrhoea [None]
  - Depression [None]

NARRATIVE: CASE EVENT DATE: 20160202
